FAERS Safety Report 4689122-8 (Version None)
Quarter: 2005Q2

REPORT INFORMATION
  Report Type: 
  Country: None (occurrence: None)
  Receive Date: 20050613
  Receipt Date: 20050516
  Transmission Date: 20051028
  Serious: Yes (Life-Threatening)
  Sender: FDA-Public Use
  Company Number: 2005AP02828

PATIENT
  Age: 28664 Day
  Sex: Male
  Weight: 58 kg

DRUGS (10)
  1. XYLOCAINE [Suspect]
     Indication: ANAESTHESIA
  2. XYLOCAINE [Suspect]
     Route: 061
     Dates: start: 20050511, end: 20050511
  3. LAXOBERON [Concomitant]
     Indication: CONSTIPATION
     Route: 048
  4. ARTIST [Concomitant]
     Indication: HYPERTENSION
     Route: 048
  5. SPLENDIL [Concomitant]
     Indication: HYPERTENSION
     Route: 048
  6. PERMILTIN [Concomitant]
     Indication: PROTEINURIA
     Route: 048
  7. TICLOPIDINE HCL [Concomitant]
     Indication: CEREBRAL INFARCTION
     Route: 048
  8. EBRANTIL [Concomitant]
     Indication: HYPERTENSION
     Route: 048
  9. ARGAMATE [Concomitant]
     Indication: HYPERKALAEMIA
     Route: 048
  10. TANKARU [Concomitant]
     Indication: GASTRITIS
     Route: 048

REACTIONS (5)
  - CARDIO-RESPIRATORY ARREST [None]
  - CONVULSION [None]
  - DEPRESSED LEVEL OF CONSCIOUSNESS [None]
  - OVERDOSE [None]
  - VOMITING [None]
